FAERS Safety Report 6036475-4 (Version None)
Quarter: 2009Q1

REPORT INFORMATION
  Report Type: 
  Country: None (occurrence: None)
  Receive Date: 20090112
  Receipt Date: 20081202
  Transmission Date: 20090719
  Serious: Yes (Other)
  Sender: FDA-Public Use
  Company Number: TUK2009A00003

PATIENT
  Age: 66 Year
  Sex: Male

DRUGS (6)
  1. ACTOS [Suspect]
     Indication: TYPE 2 DIABETES MELLITUS
     Dosage: 30 MG,
     Dates: start: 20021201
  2. METFORMIN HCL [Concomitant]
  3. SIMVASTATIN [Concomitant]
  4. ENALAPRIL MALEATE [Concomitant]
  5. ASPIRIN [Concomitant]
  6. GLIPIZIDE [Concomitant]

REACTIONS (3)
  - MACULOPATHY [None]
  - NEUROPATHY PERIPHERAL [None]
  - WEIGHT INCREASED [None]
